FAERS Safety Report 12245924 (Version 1)
Quarter: 2016Q2

REPORT INFORMATION
  Report Type: Spontaneous
  Country: US (occurrence: US)
  Receive Date: 20160407
  Receipt Date: 20160407
  Transmission Date: 20160815
  Serious: No
  Sender: FDA-Public Use
  Company Number: US-ASTRAZENECA-2016SE34828

PATIENT
  Age: 27826 Day
  Sex: Female
  Weight: 48.5 kg

DRUGS (1)
  1. CRESTOR [Suspect]
     Active Substance: ROSUVASTATIN CALCIUM
     Indication: BLOOD CHOLESTEROL INCREASED
     Route: 048
     Dates: start: 20160212

REACTIONS (4)
  - Cough [Unknown]
  - Secretion discharge [Unknown]
  - Retching [Unknown]
  - Dry throat [Unknown]

NARRATIVE: CASE EVENT DATE: 20160220
